FAERS Safety Report 6784208-6 (Version None)
Quarter: 2010Q2

REPORT INFORMATION
  Report Type: 
  Country: None (occurrence: None)
  Receive Date: 20100622
  Receipt Date: 20100609
  Transmission Date: 20101027
  Serious: Yes (Hospitalization)
  Sender: FDA-Public Use
  Company Number: CA-ELI_LILLY_AND_COMPANY-CA201006003166

PATIENT
  Age: 74 Year
  Sex: Female

DRUGS (6)
  1. FORTEO [Suspect]
     Indication: OSTEOPOROSIS
     Dosage: 20 UG, DAILY (1/D)
     Dates: start: 20100227
  2. LIPITOR [Concomitant]
  3. ARICEPT [Concomitant]
  4. OXYCONTIN [Concomitant]
  5. CALCIUM CARBONATE [Concomitant]
  6. VITAMIN D [Concomitant]

REACTIONS (6)
  - ASTHENIA [None]
  - CARDIAC DISORDER [None]
  - CONTUSION [None]
  - PERIORBITAL HAEMATOMA [None]
  - SKIN LACERATION [None]
  - SWELLING [None]
